FAERS Safety Report 4488161-X (Version None)
Quarter: 2004Q4

REPORT INFORMATION
  Report Type: 
  Country: None (occurrence: None)
  Receive Date: 20041028
  Receipt Date: 20041020
  Transmission Date: 20050328
  Serious: Yes (Death)
  Sender: FDA-Public Use
  Company Number: EMADSS2003003813

PATIENT
  Sex: Male

DRUGS (4)
  1. RISPERDAL [Suspect]
     Route: 065
     Dates: start: 20020422, end: 20020427
  2. RISPERDAL [Suspect]
     Indication: AGGRESSION
     Route: 065
     Dates: start: 20020422, end: 20020427
  3. OXAZEPAMUM [Concomitant]
     Route: 049
     Dates: start: 20020408
  4. FUROSEMIDE [Concomitant]

REACTIONS (4)
  - ABASIA [None]
  - COLD SWEAT [None]
  - NEUROLEPTIC MALIGNANT SYNDROME [None]
  - PAIN IN EXTREMITY [None]
